FAERS Safety Report 6594330-5 (Version None)
Quarter: 2010Q1

REPORT INFORMATION
  Report Type: 
  Country: None (occurrence: None)
  Receive Date: 20100222
  Receipt Date: 20100216
  Transmission Date: 20100710
  Serious: Yes (Disabling)
  Sender: FDA-Public Use
  Company Number: MX-SANOFI-AVENTIS-2009SA008187

PATIENT
  Age: 59 Year
  Sex: Female
  Weight: 70 kg

DRUGS (3)
  1. LANTUS [Suspect]
     Indication: TYPE 2 DIABETES MELLITUS
     Route: 058
     Dates: start: 20070101
  2. OPTIPEN [Suspect]
  3. AMARYL [Concomitant]
     Route: 048
     Dates: start: 20080101

REACTIONS (3)
  - MUSCULOSKELETAL PAIN [None]
  - NECK PAIN [None]
  - PERIARTHRITIS [None]
